FAERS Safety Report 14556848 (Version 1)
Quarter: 2018Q1

REPORT INFORMATION
  Report Type: Spontaneous
  Country: IT (occurrence: IT)
  Receive Date: 20180221
  Receipt Date: 20180221
  Transmission Date: 20180509
  Serious: Yes (Other)
  Sender: FDA-Public Use
  Company Number: IT-CIPLA LTD.-2018IT05229

PATIENT

DRUGS (21)
  1. PACLITAXEL. [Suspect]
     Active Substance: PACLITAXEL
     Indication: BREAST CANCER
     Dosage: 3 WEEKLY
     Route: 065
     Dates: start: 201108
  2. IMATINIB [Suspect]
     Active Substance: IMATINIB
     Indication: BREAST CANCER
  3. IMATINIB [Suspect]
     Active Substance: IMATINIB
     Indication: METASTASES TO BONE
  4. PACLITAXEL. [Suspect]
     Active Substance: PACLITAXEL
     Indication: CHRONIC MYELOID LEUKAEMIA
     Dosage: 75 MG/M2, 3 WEEKLY FOR SIX CYCLES
     Route: 065
  5. HUMAN ALBUMIN/PACLITAXEL [Suspect]
     Active Substance: PACLITAXEL
     Indication: INVASIVE DUCTAL BREAST CARCINOMA
     Dosage: 260 MG/M2, 3 WEEKLY
     Route: 065
  6. EXEMESTANE. [Suspect]
     Active Substance: EXEMESTANE
     Indication: METASTASES TO BONE
  7. DASATINIB. [Suspect]
     Active Substance: DASATINIB
     Indication: CHRONIC MYELOID LEUKAEMIA
     Dosage: 100 MG, DAILY
     Route: 065
  8. CAPECITABINE. [Suspect]
     Active Substance: CAPECITABINE
     Indication: INVASIVE DUCTAL BREAST CARCINOMA
  9. EXEMESTANE. [Suspect]
     Active Substance: EXEMESTANE
     Indication: CHRONIC MYELOID LEUKAEMIA
     Dosage: UNK
     Route: 065
  10. GRANULOCYTE COLONY STIMULATING FACTOR [Suspect]
     Active Substance: GRANULOCYTE COLONY-STIMULATING FACTOR NOS
     Indication: CHRONIC MYELOID LEUKAEMIA
     Dosage: UNK
     Route: 065
  11. GONADOTROPIN RELEASING HORMONE ANALOGUES [Suspect]
     Active Substance: GONADORELIN
     Indication: METASTASES TO BONE
     Dosage: UNK
     Route: 065
  12. EXEMESTANE. [Suspect]
     Active Substance: EXEMESTANE
     Indication: BREAST CANCER
  13. EPIRUBICIN [Suspect]
     Active Substance: EPIRUBICIN
     Indication: METASTASES TO BONE
     Dosage: 75 MG/M2, 3 WEEKLY FOR 6 CYCLES
     Route: 065
  14. PACLITAXEL. [Suspect]
     Active Substance: PACLITAXEL
     Indication: METASTASES TO BONE
  15. IMATINIB [Suspect]
     Active Substance: IMATINIB
     Indication: CHRONIC MYELOID LEUKAEMIA
     Dosage: UNK
     Route: 065
     Dates: end: 201005
  16. GONADOTROPIN RELEASING HORMONE ANALOGUES [Suspect]
     Active Substance: GONADORELIN
     Indication: BREAST CANCER
  17. EPIRUBICIN [Suspect]
     Active Substance: EPIRUBICIN
     Indication: BREAST CANCER
  18. CAPECITABINE. [Suspect]
     Active Substance: CAPECITABINE
     Indication: CHRONIC MYELOID LEUKAEMIA
     Dosage: 1000 MG/M2, BID FROM DAY 1 TO 14 EVERY 21 DAYS
     Route: 065
  19. VINORELBINE [Suspect]
     Active Substance: VINORELBINE\VINORELBINE TARTRATE
     Indication: INVASIVE DUCTAL BREAST CARCINOMA
     Dosage: 60 MG/M2, DAY 1 AND 8
     Route: 065
  20. LETROZOLE. [Suspect]
     Active Substance: LETROZOLE
     Indication: METASTASES TO BONE
     Dosage: UNK
     Route: 065
  21. LETROZOLE. [Suspect]
     Active Substance: LETROZOLE
     Indication: BREAST CANCER

REACTIONS (6)
  - Diarrhoea [Unknown]
  - Chronic myeloid leukaemia [Unknown]
  - Neutropenia [Unknown]
  - Drug resistance [Unknown]
  - Drug intolerance [Unknown]
  - Malignant neoplasm progression [Unknown]

NARRATIVE: CASE EVENT DATE: 2009
